FAERS Safety Report 25567075 (Version 1)
Quarter: 2025Q3

REPORT INFORMATION
  Report Type: Spontaneous
  Country: US (occurrence: None)
  Receive Date: 20250715
  Receipt Date: 20250715
  Transmission Date: 20251020
  Serious: Yes (Hospitalization)
  Sender: FDA-CTU
  Company Number: None

PATIENT
  Age: 59 Year
  Sex: Male

DRUGS (4)
  1. MOUNJARO [Suspect]
     Active Substance: TIRZEPATIDE
     Indication: Type 2 diabetes mellitus
     Route: 058
     Dates: start: 20250219, end: 20250325
  2. LOSARTAN [Suspect]
     Active Substance: LOSARTAN
  3. METFORMIN [Suspect]
     Active Substance: METFORMIN HYDROCHLORIDE
  4. NAPROXEN [Suspect]
     Active Substance: NAPROXEN

REACTIONS (19)
  - Nausea [None]
  - Vomiting [None]
  - Constipation [None]
  - Azotaemia [None]
  - Insurance issue [None]
  - Product dose omission issue [None]
  - Asthenia [None]
  - Hypophagia [None]
  - Blood urea increased [None]
  - Blood creatinine increased [None]
  - Fatigue [None]
  - Hypokalaemia [None]
  - Acute kidney injury [None]
  - Prerenal failure [None]
  - Dehydration [None]
  - Abdominal pain [None]
  - Decreased appetite [None]
  - Dysgeusia [None]
  - Dyspepsia [None]

NARRATIVE: CASE EVENT DATE: 20250325
